FAERS Safety Report 10032912 (Version 1)
Quarter: 2014Q1

REPORT INFORMATION
  Report Type: Spontaneous
  Country: US (occurrence: US)
  Receive Date: 20140324
  Receipt Date: 20140324
  Transmission Date: 20141002
  Serious: No
  Sender: FDA-Public Use
  Company Number: US-PFIZER INC-2014079693

PATIENT
  Age: 28 Year
  Sex: Male
  Weight: 80.27 kg

DRUGS (4)
  1. VIAGRA [Suspect]
     Indication: ERECTILE DYSFUNCTION
     Dosage: UNK, AS NEEDED
     Route: 048
  2. ERYTHROMYCIN [Concomitant]
     Dosage: UNK
  3. CLINDAMYCIN [Concomitant]
     Dosage: UNK
  4. LITHIUM [Concomitant]
     Indication: AFFECTIVE DISORDER
     Dosage: UNK

REACTIONS (2)
  - Affective disorder [Unknown]
  - Therapeutic response unexpected [Unknown]
